FAERS Safety Report 10713849 (Version 2)
Quarter: 2015Q1

REPORT INFORMATION
  Report Type: Spontaneous
  Country: US (occurrence: US)
  Receive Date: 20150115
  Receipt Date: 20150121
  Transmission Date: 20150721
  Serious: No
  Sender: FDA-Public Use
  Company Number: US-PFIZER INC-2015015562

PATIENT
  Age: 48 Year
  Sex: Male
  Weight: 108 kg

DRUGS (1)
  1. CHANTIX [Suspect]
     Active Substance: VARENICLINE TARTRATE
     Indication: SMOKING CESSATION THERAPY
     Dosage: UNK
     Dates: start: 201409

REACTIONS (8)
  - Mood altered [Unknown]
  - Nausea [Unknown]
  - Depressed mood [Unknown]
  - Nightmare [Unknown]
  - Chapped lips [Unknown]
  - Lip swelling [Unknown]
  - Skin fissures [Unknown]
  - Abnormal dreams [Unknown]
